FAERS Safety Report 12859471 (Version 24)
Quarter: 2018Q1

REPORT INFORMATION
  Report Type: Report from Study
  Country: ES (occurrence: ES)
  Receive Date: 20161018
  Receipt Date: 20180122
  Transmission Date: 20180508
  Serious: Yes (Life-Threatening, Hospitalization, Other)
  Sender: FDA-Public Use
  Company Number: ES-B.I. PHARMACEUTICALS,INC./RIDGEFIELD-2016-BI-066820

PATIENT
  Age: 73 Year
  Sex: Male
  Weight: 96.8 kg

DRUGS (24)
  1. INSULIN GLARGINE [Suspect]
     Active Substance: INSULIN GLARGINE
     Route: 058
     Dates: start: 20160526
  2. TAMSULOSIN [Concomitant]
     Active Substance: TAMSULOSIN
     Indication: BENIGN PROSTATIC HYPERPLASIA
     Dosage: 1 DAILY
     Route: 048
     Dates: start: 2011
  3. TRIFLUSAL [Concomitant]
     Active Substance: TRIFLUSAL
     Indication: THROMBOSIS PROPHYLAXIS
     Route: 048
     Dates: start: 20160428, end: 20170124
  4. NOVORAPID [Suspect]
     Active Substance: INSULIN ASPART
     Indication: TYPE 2 DIABETES MELLITUS
     Route: 058
     Dates: start: 20160526
  5. OLMESARTAN [Concomitant]
     Active Substance: OLMESARTAN
     Indication: HYPERTENSION
     Route: 048
     Dates: start: 20170510
  6. OMEPRAZOLE. [Concomitant]
     Active Substance: OMEPRAZOLE
     Indication: PROPHYLAXIS
     Route: 048
     Dates: start: 2011
  7. SPIRIVA [Concomitant]
     Active Substance: TIOTROPIUM BROMIDE MONOHYDRATE
     Indication: BRONCHITIS
  8. FUCIDIN [Concomitant]
     Active Substance: FUSIDIC ACID
     Indication: DERMATITIS CONTACT
     Route: 061
     Dates: start: 20141002, end: 20141017
  9. ACETILSALYCYCLIC ACID [Concomitant]
     Indication: THROMBOSIS PROPHYLAXIS
     Route: 048
     Dates: start: 20170615
  10. FERROUS SULFATE. [Concomitant]
     Active Substance: FERROUS SULFATE
     Indication: IRON DEFICIENCY ANAEMIA
     Route: 048
     Dates: start: 20170509
  11. INSULIN GLARGINE [Suspect]
     Active Substance: INSULIN GLARGINE
     Indication: TYPE 2 DIABETES MELLITUS
     Route: 058
     Dates: start: 20140916
  12. SPIRIVA [Concomitant]
     Active Substance: TIOTROPIUM BROMIDE MONOHYDRATE
     Indication: CHRONIC OBSTRUCTIVE PULMONARY DISEASE
     Route: 055
  13. OLMESARTAN [Concomitant]
     Active Substance: OLMESARTAN
     Route: 048
     Dates: start: 20170209
  14. SOLIFENACINA [Concomitant]
     Indication: BENIGN PROSTATIC HYPERPLASIA
     Route: 048
     Dates: start: 20170424
  15. PENTOXYFYLLINE [Concomitant]
     Indication: INTERMITTENT CLAUDICATION
     Route: 048
  16. PARACETAMOL [Concomitant]
     Active Substance: ACETAMINOPHEN
     Indication: OSTEOARTHRITIS
     Route: 048
     Dates: start: 2011
  17. LINAGLIPTIN [Suspect]
     Active Substance: LINAGLIPTIN
     Indication: TYPE 2 DIABETES MELLITUS
     Route: 048
  18. INSULIN GLARGINE [Suspect]
     Active Substance: INSULIN GLARGINE
     Route: 058
  19. NOVORAPID [Suspect]
     Active Substance: INSULIN ASPART
     Route: 058
  20. SIMVASTATIN. [Concomitant]
     Active Substance: SIMVASTATIN
     Indication: DYSLIPIDAEMIA
     Route: 048
  21. TRAMADOL. [Concomitant]
     Active Substance: TRAMADOL
     Indication: OSTEOARTHRITIS
     Route: 048
  22. NITROFURAZONE [Suspect]
     Active Substance: NITROFURAZONE
     Indication: ACTINIC KERATOSIS
     Dosage: ONLY ONE APPLICATION
     Route: 061
     Dates: start: 20160929, end: 20160929
  23. NOVORAPID [Suspect]
     Active Substance: INSULIN ASPART
     Route: 058
  24. BETAHISTINE [Concomitant]
     Active Substance: BETAHISTINE
     Indication: VERTIGO
     Route: 048
     Dates: start: 20150507

REACTIONS (8)
  - Hypoglycaemia [Recovered/Resolved]
  - Glomerular filtration rate decreased [Recovered/Resolved]
  - Hypoglycaemia [Recovered/Resolved]
  - Tendon rupture [Not Recovered/Not Resolved]
  - Photosensitivity reaction [Recovered/Resolved]
  - Eyelid oedema [Recovered/Resolved]
  - Basal cell carcinoma [Recovered/Resolved]
  - Cellulitis [Recovered/Resolved]

NARRATIVE: CASE EVENT DATE: 20140929
